FAERS Safety Report 25645953 (Version 1)
Quarter: 2025Q3

REPORT INFORMATION
  Report Type: Spontaneous
  Country: US (occurrence: None)
  Receive Date: 20250805
  Receipt Date: 20250805
  Transmission Date: 20251021
  Serious: Yes (Other)
  Sender: FDA-CTU
  Company Number: None

PATIENT
  Age: 75 Year
  Sex: Female
  Weight: 76.9 kg

DRUGS (1)
  1. IRINOTECAN [Suspect]
     Active Substance: IRINOTECAN
     Indication: Colorectal cancer

REACTIONS (4)
  - Tongue movement disturbance [None]
  - Hypoaesthesia oral [None]
  - Muscle spasms [None]
  - Infusion related reaction [None]

NARRATIVE: CASE EVENT DATE: 20250729
